FAERS Safety Report 9727700 (Version 1)
Quarter: 2013Q4

REPORT INFORMATION
  Report Type: Spontaneous
  Country: US (occurrence: US)
  Receive Date: 20131203
  Receipt Date: 20131203
  Transmission Date: 20140711
  Serious: Yes (Other)
  Sender: FDA-Public Use
  Company Number: US-MYLANLABS-2013S1026697

PATIENT
  Age: 47 Year
  Sex: Female

DRUGS (4)
  1. AMITRIPTYLINE [Suspect]
     Route: 065
  2. MELOXICAM [Concomitant]
     Route: 065
  3. PROCET                             /01554201/ [Concomitant]
     Route: 065
  4. DIPHENHYDRAMINE [Concomitant]
     Route: 065

REACTIONS (1)
  - Retinopathy [Unknown]
